FAERS Safety Report 5140105-3 (Version None)
Quarter: 2006Q4

REPORT INFORMATION
  Report Type: 
  Country: None (occurrence: None)
  Receive Date: 20061024
  Receipt Date: 20061004
  Transmission Date: 20070319
  Serious: Yes (Hospitalization, Other)
  Sender: FDA-Public Use
  Company Number: US200601001046

PATIENT
  Age: 49 Year
  Sex: Female
  Weight: 79.4 kg

DRUGS (19)
  1. ZYPREXA [Suspect]
     Indication: BIPOLAR DISORDER
     Dosage: 2 UNK ; 2.5 MG EACH EVENING ; 5 MG EACH EVENING
     Dates: start: 19970623, end: 19990830
  2. ZYPREXA [Suspect]
     Indication: BIPOLAR DISORDER
     Dosage: 2 UNK ; 2.5 MG EACH EVENING ; 5 MG EACH EVENING
     Dates: start: 19990830, end: 20000710
  3. ZYPREXA [Suspect]
     Indication: BIPOLAR DISORDER
     Dosage: 2 UNK ; 2.5 MG EACH EVENING ; 5 MG EACH EVENING
     Dates: start: 20000724, end: 20001009
  4. ZYPREXA [Suspect]
     Indication: BIPOLAR DISORDER
     Dosage: 2 UNK ; 2.5 MG EACH EVENING ; 5 MG EACH EVENING
     Dates: start: 20000724, end: 20001009
  5. ZYPREXA [Suspect]
     Indication: BIPOLAR DISORDER
     Dosage: 2 UNK ; 2.5 MG EACH EVENING ; 5 MG EACH EVENING
     Dates: end: 20040824
  6. BETA BLOCKING AGENTS [Concomitant]
  7. ZAROXOLYN [Concomitant]
  8. DEPAKOTE [Concomitant]
  9. SEROQUEL [Concomitant]
  10. DIAZEPAM [Concomitant]
  11. GEMFIBROZIL [Concomitant]
  12. SPIRONOLACTONE [Concomitant]
  13. NTG (GLYCERYL TRINITRATE) [Concomitant]
  14. ASA TABS (ACETYLSALICYLIC ACID) [Concomitant]
  15. RISPERIDONE [Concomitant]
  16. LEVOXYL [Concomitant]
  17. LASIX [Concomitant]
  18. NADOLOL [Concomitant]
  19. ZETIA [Concomitant]

REACTIONS (18)
  - ANGINA PECTORIS [None]
  - BREAST CYST [None]
  - BREAST HAEMORRHAGE [None]
  - CARDIAC DISORDER [None]
  - CARDIAC FAILURE CONGESTIVE [None]
  - CARDIAC VALVE DISEASE [None]
  - DIABETES MELLITUS NON-INSULIN-DEPENDENT [None]
  - FIBROMYALGIA [None]
  - GENERAL PHYSICAL HEALTH DETERIORATION [None]
  - HEPATIC CIRRHOSIS [None]
  - HEPATIC FAILURE [None]
  - HEPATOMEGALY [None]
  - HYPOMAGNESAEMIA [None]
  - LUNG DISORDER [None]
  - MENORRHAGIA [None]
  - OBESITY [None]
  - PAIN [None]
  - RENAL HAEMORRHAGE [None]
